FAERS Safety Report 8559756-9 (Version None)
Quarter: 2012Q3

REPORT INFORMATION
  Report Type: 
  Country: None (occurrence: None)
  Receive Date: 20120802
  Receipt Date: 20120801
  Transmission Date: 20120928
  Serious: No
  Sender: FDA-Public Use
  Company Number: US-PFIZER INC-2012112903

PATIENT
  Sex: Female
  Weight: 100 kg

DRUGS (6)
  1. NICOTINE [Suspect]
     Indication: SMOKING CESSATION THERAPY
     Dosage: UNK, 2X/DAY
     Route: 062
  2. CHANTIX [Suspect]
     Indication: SMOKING CESSATION THERAPY
     Dosage: 0.5 MG, DAILY
  3. CHANTIX [Suspect]
     Dosage: 0.5 MG, 2X/DAY
  4. ATENOLOL [Concomitant]
     Indication: HYPERTENSION
     Dosage: 100 MG, DAILY
  5. TRIAMTERENE AND HYDROCHLOROTHIAZIDE [Concomitant]
     Indication: HYPERTENSION
     Dosage: 50/75 MG, DAILY
  6. CHANTIX [Suspect]
     Dosage: 1 MG, 2X/DAY

REACTIONS (5)
  - PRURITUS [None]
  - MALAISE [None]
  - HYPERSENSITIVITY [None]
  - BLISTER [None]
  - NAUSEA [None]
